FAERS Safety Report 24387960 (Version 1)
Quarter: 2024Q4

REPORT INFORMATION
  Report Type: Spontaneous
  Country: RO (occurrence: RO)
  Receive Date: 20241002
  Receipt Date: 20241002
  Transmission Date: 20250115
  Serious: Yes (Death, Other)
  Sender: PFIZER
  Company Number: RO-PFIZER INC-PV202400127457

PATIENT
  Age: 50 Year
  Sex: Female

DRUGS (1)
  1. MYLOTARG [Suspect]
     Active Substance: GEMTUZUMAB OZOGAMICIN
     Indication: Acute myeloid leukaemia
     Dosage: 3 CYCLES
     Dates: start: 202409

REACTIONS (5)
  - Death [Fatal]
  - Clostridium difficile infection [Unknown]
  - Electrolyte imbalance [Unknown]
  - Pancytopenia [Unknown]
  - Thrombocytopenia [Unknown]
